FAERS Safety Report 5776160-7 (Version None)
Quarter: 2008Q2

REPORT INFORMATION
  Report Type: 
  Country: None (occurrence: None)
  Receive Date: 20080613
  Receipt Date: 20080530
  Transmission Date: 20081010
  Serious: Yes (Hospitalization)
  Sender: FDA-Public Use
  Company Number: 2008PV000043

PATIENT
  Age: 77 Year
  Sex: Female

DRUGS (5)
  1. DEPOCYT [Suspect]
     Indication: ACUTE LYMPHOCYTIC LEUKAEMIA
     Dosage: INTH
     Route: 037
  2. METHOTREXATE (CON.) [Concomitant]
  3. CYTARABINE (CON.) [Concomitant]
  4. DEXAMETHASONE (CON.) [Concomitant]
  5. GLAZIDIM (CON.) [Concomitant]

REACTIONS (5)
  - ACUTE LEUKAEMIA [None]
  - DISEASE PROGRESSION [None]
  - ENCEPHALOPATHY [None]
  - PAIN [None]
  - PYREXIA [None]
